FAERS Safety Report 13947472 (Version 2)
Quarter: 2017Q4

REPORT INFORMATION
  Report Type: Spontaneous
  Country: IE (occurrence: IE)
  Receive Date: 20170908
  Receipt Date: 20171202
  Transmission Date: 20180320
  Serious: Yes (Hospitalization)
  Sender: FDA-Public Use
  Company Number: IE-SUN PHARMACEUTICAL INDUSTRIES LTD-2017R1-149295

PATIENT
  Age: 30 Year
  Sex: Male

DRUGS (1)
  1. DESMOPRESSIN [Suspect]
     Active Substance: DESMOPRESSIN
     Indication: ENURESIS
     Dosage: UNK
     Route: 045

REACTIONS (5)
  - Vomiting [Unknown]
  - Generalised tonic-clonic seizure [Unknown]
  - Nausea [Unknown]
  - Hyponatraemia [Recovered/Resolved]
  - Headache [Unknown]
